FAERS Safety Report 10038478 (Version 1)
Quarter: 2014Q1

REPORT INFORMATION
  Report Type: Report from Study
  Country: US (occurrence: US)
  Receive Date: 20140326
  Receipt Date: 20140326
  Transmission Date: 20141002
  Serious: Yes (Hospitalization)
  Sender: FDA-Public Use
  Company Number: US-009507513-1403USA010155

PATIENT
  Age: 55 Year
  Sex: Male
  Weight: 100.23 kg

DRUGS (4)
  1. VORINOSTAT [Suspect]
     Indication: SQUAMOUS CELL CARCINOMA OF HEAD AND NECK
     Dosage: 300 MG, TIW (ON MON. WED. FRI.)
     Route: 048
     Dates: start: 20140106, end: 20140305
  2. CISPLATIN [Suspect]
     Indication: SQUAMOUS CELL CARCINOMA OF HEAD AND NECK
     Dosage: 100 MG/M2, ONCE
     Route: 042
     Dates: start: 20140203, end: 20140203
  3. CISPLATIN [Suspect]
     Dosage: 100 MG/M2, ONCE
     Route: 042
     Dates: start: 20140224, end: 20140224
  4. CISPLATIN [Suspect]
     Dosage: 100 MG/M2, ONCE
     Route: 042
     Dates: start: 20140313, end: 20140313

REACTIONS (2)
  - Dyspnoea [Unknown]
  - Anaemia [Unknown]
